FAERS Safety Report 6135467-4 (Version None)
Quarter: 2009Q1

REPORT INFORMATION
  Report Type: 
  Country: None (occurrence: None)
  Receive Date: 20090327
  Receipt Date: 20090319
  Transmission Date: 20090719
  Serious: Yes (Hospitalization)
  Sender: FDA-Public Use
  Company Number: A0764368A

PATIENT
  Sex: Female
  Weight: 70 kg

DRUGS (7)
  1. AVANDIA [Suspect]
  2. MICRONASE [Suspect]
     Dosage: 20MG PER DAY
     Dates: end: 20081223
  3. GLIBENCLAMIDE [Suspect]
  4. GLUCOPHAGE [Suspect]
     Dosage: 750MG TWICE PER DAY
     Dates: end: 20081220
  5. FOLIC ACID [Concomitant]
  6. ASPIRIN [Concomitant]
  7. POTASSIUM CHLORIDE [Concomitant]

REACTIONS (10)
  - ASTHENIA [None]
  - BLOOD GLUCOSE DECREASED [None]
  - BODY HEIGHT DECREASED [None]
  - CARDIAC DISORDER [None]
  - DIZZINESS [None]
  - GLYCOSYLATED HAEMOGLOBIN INCREASED [None]
  - HYPOGLYCAEMIA [None]
  - METAMORPHOPSIA [None]
  - TREMOR [None]
  - VISION BLURRED [None]
